FAERS Safety Report 22350527 (Version 1)
Quarter: 2023Q2

REPORT INFORMATION
  Report Type: Spontaneous
  Country: CN (occurrence: CN)
  Receive Date: 20230522
  Receipt Date: 20230522
  Transmission Date: 20230722
  Serious: Yes (Life-Threatening, Other)
  Sender: FDA-Public Use
  Company Number: CN-NOVOPROD-1064371

PATIENT
  Age: 53 Year
  Sex: Female

DRUGS (2)
  1. NOVOSEVEN [Suspect]
     Active Substance: COAGULATION FACTOR VIIA RECOMBINANT HUMAN
     Indication: Prophylaxis
     Dosage: 15 ?G/KG, TID (FOR THE FIRST 24  H)
     Route: 042
  2. NOVOSEVEN [Suspect]
     Active Substance: COAGULATION FACTOR VIIA RECOMBINANT HUMAN
     Indication: Factor VII deficiency
     Dosage: 20 ?G/KG (BEFORE SURGERY)

REACTIONS (2)
  - Peripheral embolism [Recovered/Resolved]
  - Pulmonary embolism [Recovered/Resolved]
